FAERS Safety Report 9892262 (Version 3)
Quarter: 2014Q2

REPORT INFORMATION
  Report Type: Spontaneous
  Country: IT (occurrence: IT)
  Receive Date: 20140212
  Receipt Date: 20140411
  Transmission Date: 20141212
  Serious: Yes (Hospitalization)
  Sender: FDA-Public Use
  Company Number: IT-PFIZER INC-2014039393

PATIENT
  Age: 14 Year
  Sex: Female

DRUGS (1)
  1. EFEXOR ER [Suspect]
     Dosage: 300 MG, TOTAL
     Route: 048
     Dates: start: 20140118, end: 20140118

REACTIONS (2)
  - Drug abuse [Recovered/Resolved]
  - Dyspnoea [Recovered/Resolved]
